FAERS Safety Report 13877070 (Version 1)
Quarter: 2017Q3

REPORT INFORMATION
  Report Type: Spontaneous
  Country: IL (occurrence: IL)
  Receive Date: 20170817
  Receipt Date: 20170817
  Transmission Date: 20171127
  Serious: Yes (Disabling, Other)
  Sender: FDA-Public Use
  Company Number: IL-JNJFOC-20170811725

PATIENT
  Age: 63 Year
  Sex: Male

DRUGS (1)
  1. IMBRUVICA [Suspect]
     Active Substance: IBRUTINIB
     Indication: LYMPHOCYTIC LYMPHOMA
     Route: 048

REACTIONS (4)
  - Post procedural haemorrhage [Unknown]
  - Off label use [Unknown]
  - Blindness [Not Recovered/Not Resolved]
  - Eye infection [Recovered/Resolved with Sequelae]
